FAERS Safety Report 7670976-8 (Version None)
Quarter: 2011Q3

REPORT INFORMATION
  Report Type: 
  Country: None (occurrence: None)
  Receive Date: 20110809
  Receipt Date: 20110804
  Transmission Date: 20111222
  Serious: No
  Sender: FDA-Public Use
  Company Number: US-PFIZER INC-2011179429

PATIENT
  Sex: Male
  Weight: 68.027 kg

DRUGS (7)
  1. TAMSULOSIN HYDROCHLORIDE [Concomitant]
     Indication: BLOOD PARATHYROID HORMONE ABNORMAL
     Dosage: 0.4 MG, DAILY
  2. MAGNESIUM [Concomitant]
     Dosage: UNK
  3. ATIVAN [Concomitant]
     Indication: AGITATION
     Dosage: 1 MG, UNK
  4. MORPHINE [Concomitant]
     Indication: CANCER PAIN
     Dosage: 0.25 MG, UNK
  5. TIKOSYN [Suspect]
     Indication: ATRIAL FIBRILLATION
     Dosage: 250 UG, 2X/DAY
     Route: 048
     Dates: start: 20110101
  6. COREG [Concomitant]
     Indication: BLOOD PRESSURE ABNORMAL
     Dosage: 6.25 MG, 2X/DAY
  7. LORAZEPAM [Concomitant]
     Dosage: UNK

REACTIONS (1)
  - DYSPHAGIA [None]
